FAERS Safety Report 5079672-7 (Version None)
Quarter: 2006Q3

REPORT INFORMATION
  Report Type: 
  Country: None (occurrence: None)
  Receive Date: 20060808
  Receipt Date: 20060724
  Transmission Date: 20061208
  Serious: Yes (Congenital Anomaly, Other)
  Sender: FDA-Public Use
  Company Number: US200511001553

PATIENT
  Sex: Female

DRUGS (4)
  1. ILETIN(INSULILN, ANIMAL UNKNOWN FORMULATION) UNKNOWN [Suspect]
     Dosage: TRANSPLACENTAL
     Route: 064
     Dates: start: 19860101
  2. ILETIN [Suspect]
     Dosage: TRANSPLACENTAL
     Route: 064
     Dates: start: 19860101
  3. HUMULIN 70/30 [Suspect]
     Dosage: TRANSPLACENTAL
     Route: 064
  4. NOVOLIN (INSULIN HMAN, INSULIN HUMAN INJECTION, ISOPHANE) [Concomitant]

REACTIONS (9)
  - BONE DISORDER [None]
  - CLEFT PALATE [None]
  - DRUG EXPOSURE DURING PREGNANCY [None]
  - FEEDING DISORDER NEONATAL [None]
  - HYPERPLASIA [None]
  - LOWER LIMB DEFORMITY [None]
  - PREMATURE BABY [None]
  - STUBBORNNESS [None]
  - TRACHEOSTOMY [None]
